FAERS Safety Report 9844305 (Version 1)
Quarter: 2014Q1

REPORT INFORMATION
  Report Type: Spontaneous
  Country: None (occurrence: None)
  Receive Date: 20140103
  Receipt Date: 20140103
  Transmission Date: 20141002
  Serious: Yes (Hospitalization)
  Sender: FDA-Public Use
  Company Number: AECAN201300470

PATIENT
  Age: 43 Year
  Sex: Female

DRUGS (6)
  1. PROLASTIN-C [Suspect]
     Indication: ALPHA-1 ANTI-TRYPSIN DEFICIENCY
     Route: 042
     Dates: start: 20130816, end: 20130906
  2. VENTOLIN/00139501 [Concomitant]
  3. SPIRIVA [Concomitant]
  4. SYMBICORT [Concomitant]
  5. PULMICORT [Concomitant]
  6. SALBUTAMOL [Concomitant]

REACTIONS (6)
  - Dyspnoea [None]
  - Vomiting [None]
  - Pruritus [None]
  - Malaise [None]
  - Dehydration [None]
  - Herpes zoster [None]
